FAERS Safety Report 7115337-5 (Version None)
Quarter: 2010Q4

REPORT INFORMATION
  Report Type: 
  Country: None (occurrence: None)
  Receive Date: 20101116
  Receipt Date: 20101116
  Transmission Date: 20110411
  Serious: Yes (Hospitalization)
  Sender: FDA-Public Use
  Company Number: None

PATIENT
  Age: 69 Year
  Sex: Male
  Weight: 118 kg

DRUGS (2)
  1. LISINOPRIL [Suspect]
     Indication: HYPERTENSION
     Dosage: 40 MG EVERY DAY
     Dates: start: 20070619, end: 20101110
  2. FATTY ACID [Suspect]
     Indication: HYPERLIPIDAEMIA
     Dosage: EVERY DAY PO
     Route: 048
     Dates: start: 20101104, end: 20101105

REACTIONS (3)
  - ANGIOEDEMA [None]
  - PRODUCT SUBSTITUTION ISSUE [None]
  - URTICARIA [None]
